FAERS Safety Report 7711053-7 (Version None)
Quarter: 2011Q3

REPORT INFORMATION
  Report Type: 
  Country: None (occurrence: None)
  Receive Date: 20110826
  Receipt Date: 20110819
  Transmission Date: 20111222
  Serious: Yes (Other)
  Sender: FDA-Public Use
  Company Number: US-BRISTOL-MYERS SQUIBB COMPANY-15986334

PATIENT

DRUGS (1)
  1. REYATAZ [Suspect]

REACTIONS (1)
  - THROAT CANCER [None]
